FAERS Safety Report 7453581-8 (Version None)
Quarter: 2011Q2

REPORT INFORMATION
  Report Type: 
  Country: None (occurrence: None)
  Receive Date: 20110502
  Receipt Date: 20110427
  Transmission Date: 20111010
  Serious: Yes (Other)
  Sender: FDA-Public Use
  Company Number: CA-B.I. PHARMACEUTICALS,INC./RIDGEFIELD-2011-CN-00532CN

PATIENT
  Age: 74 Year
  Sex: Male
  Weight: 65 kg

DRUGS (10)
  1. LISINOPRIL [Concomitant]
     Dosage: 10 MG
  2. METOPROLOL SUCCINATE [Concomitant]
     Dosage: 100 MG
  3. TYLENOL (CAPLET) [Concomitant]
  4. LANSOPRAZOLE [Concomitant]
     Dosage: 30 MG
  5. DOMPERIDONE [Concomitant]
     Dosage: 10 MG
  6. PRADAXA [Suspect]
     Indication: ATRIAL FIBRILLATION
     Dosage: 300 MG
     Dates: start: 20110301, end: 20110417
  7. CITROCAL [Concomitant]
  8. CRESTOR [Concomitant]
     Dosage: 10 MG
  9. RISEDRONATE [Concomitant]
  10. VITAMIN D [Concomitant]
     Dosage: 100 U

REACTIONS (3)
  - PAIN IN EXTREMITY [None]
  - THROMBOSIS [None]
  - NAUSEA [None]
